FAERS Safety Report 15124411 (Version 2)
Quarter: 2018Q3

REPORT INFORMATION
  Report Type: Report from Study
  Country: IT (occurrence: IT)
  Receive Date: 20180710
  Receipt Date: 20180725
  Transmission Date: 20181010
  Serious: Yes (Other)
  Sender: FDA-Public Use
  Company Number: IT-TEVA-2018-IT-922134

PATIENT
  Age: 40 Year
  Sex: Female

DRUGS (2)
  1. ROCEFIN 250 MG/2 ML POLVERE E SOLVENTE PER SOLUZIONE INIETTABILE PER U [Concomitant]
     Indication: URINARY TRACT INFECTION
     Route: 030
     Dates: start: 20180416, end: 20180420
  2. LANSOPRAZOLO DOC GENERICI 30 MG CAPSULE RIGIDE GASTRORESISTENTI [Suspect]
     Active Substance: LANSOPRAZOLE
     Indication: GASTRITIS
     Route: 048
     Dates: start: 20180502, end: 20180513

REACTIONS (4)
  - Pruritus [Recovering/Resolving]
  - Palmar-plantar erythrodysaesthesia syndrome [Recovering/Resolving]
  - Chest discomfort [Recovering/Resolving]
  - Sensation of foreign body [Recovering/Resolving]

NARRATIVE: CASE EVENT DATE: 20180513
